FAERS Safety Report 19750380 (Version 1)
Quarter: 2021Q3

REPORT INFORMATION
  Report Type: Spontaneous
  Country: US (occurrence: US)
  Receive Date: 20210826
  Receipt Date: 20210826
  Transmission Date: 20211014
  Serious: Yes (Hospitalization)
  Sender: FDA-Public Use
  Company Number: None

PATIENT
  Age: 38 Year
  Sex: Female

DRUGS (8)
  1. TRI? LO [Concomitant]
  2. VITAMIN D3 [Concomitant]
     Active Substance: CHOLECALCIFEROL
  3. VALACYCLOVIR [Concomitant]
     Active Substance: VALACYCLOVIR HYDROCHLORIDE
  4. MAYZENT [Suspect]
     Active Substance: SIPONIMOD
     Indication: MULTIPLE SCLEROSIS
     Route: 048
     Dates: start: 20210423
  5. AMLODIPINE [Concomitant]
     Active Substance: AMLODIPINE BESYLATE
  6. LISINOPRIL. [Concomitant]
     Active Substance: LISINOPRIL
  7. NORTRIPTYLIN [Concomitant]
     Active Substance: NORTRIPTYLINE
  8. ALBUTEROL. [Concomitant]
     Active Substance: ALBUTEROL

REACTIONS (1)
  - Migraine [None]

NARRATIVE: CASE EVENT DATE: 20210816
